FAERS Safety Report 5862358-6 (Version None)
Quarter: 2008Q3

REPORT INFORMATION
  Report Type: 
  Country: None (occurrence: None)
  Receive Date: 20080818
  Receipt Date: 20080527
  Transmission Date: 20090109
  Serious: No
  Sender: FDA-Public Use
  Company Number: WAES 0805USA06039

PATIENT
  Age: 62 Year
  Sex: Male

DRUGS (5)
  1. JANUVIA [Suspect]
     Dosage: 100 MG DAILY PO
     Route: 048
  2. COUMADIN [Concomitant]
  3. DIOVAN [Concomitant]
  4. ZOCOR [Concomitant]
  5. METFORMIN HCL [Concomitant]

REACTIONS (2)
  - ANGIOEDEMA [None]
  - DYSPHAGIA [None]
